FAERS Safety Report 10073463 (Version 2)
Quarter: 2015Q1

REPORT INFORMATION
  Report Type: Spontaneous
  Country: FR (occurrence: FR)
  Receive Date: 20140411
  Receipt Date: 20140411
  Transmission Date: 20150720
  Serious: Yes (Other)
  Sender: FDA-Public Use
  Company Number: FR-ACTAVIS-2014-06782

PATIENT
  Age: 16 Year
  Sex: Male

DRUGS (15)
  1. CLONAZEPAM (UNKNOWN) [Suspect]
     Active Substance: CLONAZEPAM
     Indication: SCHIZOPHRENIA, CATATONIC TYPE
     Dosage: 0.05 MG/KG, DAILY
     Route: 048
     Dates: start: 200908
  2. CARBAMAZEPINE (UNKNOWN) [Suspect]
     Active Substance: CARBAMAZEPINE
     Indication: SCHIZOPHRENIA, CATATONIC TYPE
     Dosage: 10 MG/KG, DAILY
     Route: 048
  3. LORAZEPAM (UNKNOWN) [Suspect]
     Active Substance: LORAZEPAM
     Indication: SCHIZOPHRENIA, CATATONIC TYPE
     Dosage: 5 MG, DAILY
     Route: 042
  4. OLANZAPINE (UNKNOWN) [Suspect]
     Active Substance: OLANZAPINE
     Indication: SCHIZOPHRENIA, CATATONIC TYPE
     Dosage: 5 MG, DAILY
     Route: 065
  5. OLANZAPINE (UNKNOWN) [Suspect]
     Active Substance: OLANZAPINE
     Dosage: 10 MG, DAILY
     Route: 065
  6. LITHIUM CARBONATE (UNKNOWN) [Suspect]
     Active Substance: LITHIUM CARBONATE
     Indication: SCHIZOPHRENIA, CATATONIC TYPE
     Dosage: 250 MG, DAILY
     Route: 048
  7. OLANZAPINE (UNKNOWN) [Suspect]
     Active Substance: OLANZAPINE
     Dosage: 15 UNK, UNK
     Route: 065
  8. RISPERIDONE (UNKNOWN) [Suspect]
     Active Substance: RISPERIDONE
     Indication: SCHIZOPHRENIA, CATATONIC TYPE
     Dosage: 1 MG, UNKNOWN
     Route: 048
  9. CLONAZEPAM (UNKNOWN) [Suspect]
     Active Substance: CLONAZEPAM
     Dosage: 0.05 MG/KG, DAILY
     Route: 042
  10. CLONAZEPAM (UNKNOWN) [Suspect]
     Active Substance: CLONAZEPAM
     Dosage: 0.1 UNK, UNK
  11. CLOZAPINE (UNKNOWN) [Suspect]
     Active Substance: CLOZAPINE
     Indication: SCHIZOPHRENIA, CATATONIC TYPE
     Dosage: 25 MG, DAILY
     Route: 065
  12. CLONAZEPAM (UNKNOWN) [Suspect]
     Active Substance: CLONAZEPAM
     Dosage: 10 DROPS, TID
     Route: 048
  13. OLANZAPINE (UNKNOWN) [Suspect]
     Active Substance: OLANZAPINE
     Dosage: 20 MG, DAILY
     Route: 065
  14. OLANZAPINE (UNKNOWN) [Suspect]
     Active Substance: OLANZAPINE
     Dosage: 15 MG, DAILY
     Route: 065
  15. CLOZAPINE (UNKNOWN) [Suspect]
     Active Substance: CLOZAPINE
     Dosage: 250 MG, INCREASED FROM 25 MG BY 25 MG WEEKLY, DAILY
     Route: 065

REACTIONS (4)
  - Sedation [Unknown]
  - Parkinsonism [Unknown]
  - Fatigue [Unknown]
  - Weight increased [Unknown]
